FAERS Safety Report 6287064-8 (Version None)
Quarter: 2009Q3

REPORT INFORMATION
  Report Type: 
  Country: None (occurrence: None)
  Receive Date: 20090727
  Receipt Date: 20090727
  Transmission Date: 20100115
  Serious: Yes (Disabling, Other)
  Sender: FDA-Public Use
  Company Number: None

PATIENT
  Sex: Female
  Weight: 61.2356 kg

DRUGS (4)
  1. PAXIL [Suspect]
     Indication: ANXIETY
     Dosage: 60MG DAILY 20 MG 3X DAILY ORAL
     Route: 048
     Dates: start: 20010301, end: 20071201
  2. PAXIL [Suspect]
     Indication: BIPOLAR I DISORDER
     Dosage: 60MG DAILY 20 MG 3X DAILY ORAL
     Route: 048
     Dates: start: 20010301, end: 20071201
  3. LITHIUM CARBONATE [Concomitant]
  4. BUSPAR [Concomitant]

REACTIONS (29)
  - ABDOMINAL DISTENSION [None]
  - ABDOMINAL PAIN UPPER [None]
  - ACTIVITIES OF DAILY LIVING IMPAIRED [None]
  - AGORAPHOBIA [None]
  - ANXIETY [None]
  - ASTHENIA [None]
  - BEDRIDDEN [None]
  - CONSCIOUSNESS FLUCTUATING [None]
  - CONSTIPATION [None]
  - DIARRHOEA [None]
  - DRUG DEPENDENCE [None]
  - FATIGUE [None]
  - FEELING ABNORMAL [None]
  - FRUSTRATION [None]
  - HALLUCINATION [None]
  - IMPAIRED WORK ABILITY [None]
  - INFLUENZA LIKE ILLNESS [None]
  - MALAISE [None]
  - MEMORY IMPAIRMENT [None]
  - MENTAL IMPAIRMENT [None]
  - MIGRAINE [None]
  - NAUSEA [None]
  - NERVOUS SYSTEM DISORDER [None]
  - PARADOXICAL DRUG REACTION [None]
  - PHOTOPHOBIA [None]
  - PYREXIA [None]
  - SOCIAL AVOIDANT BEHAVIOUR [None]
  - VERTIGO [None]
  - WITHDRAWAL SYNDROME [None]
